FAERS Safety Report 9269869 (Version 2)
Quarter: 2013Q3

REPORT INFORMATION
  Report Type: Spontaneous
  Country: US (occurrence: US)
  Receive Date: 20130503
  Receipt Date: 20130910
  Transmission Date: 20140515
  Serious: Yes (Hospitalization)
  Sender: FDA-Public Use
  Company Number: US-B.I. PHARMACEUTICALS,INC./RIDGEFIELD-2013-BI-12208BP

PATIENT
  Age: 87 Year
  Sex: Male
  Weight: 57.6 kg

DRUGS (9)
  1. PRADAXA [Suspect]
     Indication: ATRIAL FIBRILLATION
     Dosage: 300 MG
     Route: 048
     Dates: start: 20110422, end: 20110429
  2. PRADAXA [Suspect]
     Indication: ANTICOAGULANT THERAPY
  3. PRILOSEC [Concomitant]
     Dosage: 20 MG
     Route: 048
  4. ZOCOR [Concomitant]
     Dosage: 20 MG
     Route: 048
  5. THERAPEUTIC M [Concomitant]
     Route: 048
  6. ULTRAM [Concomitant]
     Dosage: 50 MG
     Route: 048
  7. LEVOTHYROXINE [Concomitant]
     Dosage: 0.075 MG
     Route: 048
  8. SOTALOL [Concomitant]
     Dosage: 80 MG
     Route: 048
  9. HYDROCODONE [Concomitant]
     Route: 048

REACTIONS (5)
  - Lower gastrointestinal haemorrhage [Recovered/Resolved]
  - Haemorrhagic anaemia [Unknown]
  - Sinus bradycardia [Unknown]
  - Contusion [Unknown]
  - Fall [Unknown]
